FAERS Safety Report 18575018 (Version 1)
Quarter: 2020Q4

REPORT INFORMATION
  Report Type: Spontaneous
  Country: US (occurrence: US)
  Receive Date: 20201203
  Receipt Date: 20201203
  Transmission Date: 20210114
  Serious: Yes (Other)
  Sender: FDA-Public Use
  Company Number: US-FARMAPROD-202011-1590

PATIENT
  Sex: Male

DRUGS (8)
  1. FAMOTIDINE. [Concomitant]
     Active Substance: FAMOTIDINE
  2. DOXYCYCLINE HYCLATE. [Concomitant]
     Active Substance: DOXYCYCLINE HYCLATE
  3. CLOBAZAM. [Concomitant]
     Active Substance: CLOBAZAM
  4. VITAMINE C [Concomitant]
     Active Substance: ASCORBIC ACID
     Dosage: DELAY RELEASE CAPSULE
  5. TOPIRAMATE. [Concomitant]
     Active Substance: TOPIRAMATE
  6. OXERVATE [Suspect]
     Active Substance: CENEGERMIN-BKBJ
     Indication: PRODUCT USED FOR UNKNOWN INDICATION
     Route: 047
     Dates: start: 20201002
  7. TOPIRAMATE. [Concomitant]
     Active Substance: TOPIRAMATE
  8. RISPERDAL [Concomitant]
     Active Substance: RISPERIDONE

REACTIONS (1)
  - Corneal transplant [Unknown]

NARRATIVE: CASE EVENT DATE: 2020
